FAERS Safety Report 21029446 (Version 1)
Quarter: 2022Q2

REPORT INFORMATION
  Report Type: Spontaneous
  Country: IT (occurrence: IT)
  Receive Date: 20220630
  Receipt Date: 20220630
  Transmission Date: 20220721
  Serious: Yes (Other)
  Sender: FDA-Public Use
  Company Number: IT-JAZZ-2022-IT-020801

PATIENT
  Age: 68 Year
  Sex: Male

DRUGS (2)
  1. VYXEOS [Suspect]
     Active Substance: CYTARABINE\DAUNORUBICIN
     Indication: Acute myeloid leukaemia
     Dosage: UNK
     Dates: start: 20220319
  2. VYXEOS [Suspect]
     Active Substance: CYTARABINE\DAUNORUBICIN
     Indication: Myelodysplastic syndrome

REACTIONS (4)
  - Pneumonia [Recovered/Resolved]
  - Cardiac failure [Recovered/Resolved]
  - Staphylococcal infection [Unknown]
  - Drug ineffective [Unknown]
